FAERS Safety Report 22053925 (Version 2)
Quarter: 2023Q2

REPORT INFORMATION
  Report Type: Spontaneous
  Country: US (occurrence: US)
  Receive Date: 20230302
  Receipt Date: 20230510
  Transmission Date: 20230722
  Serious: No
  Sender: FDA-Public Use
  Company Number: US-PFIZER INC-PV202200049666

PATIENT
  Age: 68 Year
  Sex: Female

DRUGS (2)
  1. IBRANCE [Suspect]
     Active Substance: PALBOCICLIB
     Dosage: 125 MG, CYCLIC
     Dates: end: 20220801
  2. IBRANCE [Suspect]
     Active Substance: PALBOCICLIB
     Dosage: 125 MG, CYCLIC

REACTIONS (7)
  - White blood cell count decreased [Unknown]
  - Diarrhoea [Unknown]
  - Nausea [Unknown]
  - Brain fog [Unknown]
  - Fatigue [Unknown]
  - Abdominal discomfort [Unknown]
  - Dry skin [Unknown]
